FAERS Safety Report 9035168 (Version 1)
Quarter: 2013Q1

REPORT INFORMATION
  Report Type: Report from Study
  Country: US (occurrence: US)
  Receive Date: 20130129
  Receipt Date: 20130129
  Transmission Date: 20140127
  Serious: No
  Sender: FDA-Public Use
  Company Number: US-ABBOTT-12P-163-0895226-00

PATIENT
  Age: 43 Year
  Sex: Female

DRUGS (15)
  1. HUMIRA 40 MG/0.8 ML PEN [Suspect]
     Indication: SYSTEMIC LUPUS ERYTHEMATOSUS
     Dosage: FIRST INJECTION
     Dates: start: 20120111
  2. CYMBALTA [Concomitant]
     Indication: FIBROMYALGIA
  3. CYMBALTA [Concomitant]
     Indication: DEPRESSION
  4. LEVOTHYROXINE [Concomitant]
     Indication: HYPOTHYROIDISM
  5. CLONAZEPAM [Concomitant]
     Indication: ANXIETY
     Dosage: AT NIGHT
  6. OMEPRAZOLE [Concomitant]
     Indication: GASTROOESOPHAGEAL REFLUX DISEASE
  7. HYDROXYCHLOROQUINE [Concomitant]
     Indication: SYSTEMIC LUPUS ERYTHEMATOSUS
  8. GABAPENTIN [Concomitant]
     Indication: NEUROPATHY PERIPHERAL
  9. TRAMADOL [Concomitant]
     Indication: PAIN
     Dosage: UP TO THREE TIMES A DAY
  10. METOPROLOL TARTRATE [Concomitant]
     Indication: HYPERTENSION
  11. PREDNISONE [Concomitant]
     Indication: INFLAMMATION
  12. METHOTREXATE [Concomitant]
     Indication: SYSTEMIC LUPUS ERYTHEMATOSUS
  13. METHOTREXATE [Concomitant]
     Indication: CONNECTIVE TISSUE DISORDER
  14. NABUMETONE [Concomitant]
     Indication: INFLAMMATION
  15. FOLIC ACID [Concomitant]
     Indication: CONNECTIVE TISSUE DISORDER

REACTIONS (2)
  - Headache [Not Recovered/Not Resolved]
  - Myalgia [Unknown]
